FAERS Safety Report 14284278 (Version 4)
Quarter: 2018Q2

REPORT INFORMATION
  Report Type: Spontaneous
  Country: DK (occurrence: DK)
  Receive Date: 20171214
  Receipt Date: 20180630
  Transmission Date: 20180711
  Serious: Yes (Hospitalization)
  Sender: FDA-Public Use
  Company Number: DK-AUROBINDO-AUR-APL-2017-45289

PATIENT
  Age: 75 Year
  Sex: Female
  Weight: 64 kg

DRUGS (1)
  1. ALENDRONIC ACID AUROBINDO TABLETS [Suspect]
     Active Substance: ALENDRONIC ACID
     Indication: POLYMYALGIA RHEUMATICA
     Dosage: 70 MG, EVERY WEEK
     Route: 048
     Dates: start: 20110909

REACTIONS (2)
  - Jaw operation [Recovered/Resolved]
  - Osteonecrosis of jaw [Not Recovered/Not Resolved]

NARRATIVE: CASE EVENT DATE: 201708
